FAERS Safety Report 5465176-6 (Version None)
Quarter: 2007Q3

REPORT INFORMATION
  Report Type: 
  Country: None (occurrence: None)
  Receive Date: 20070924
  Receipt Date: 20070918
  Transmission Date: 20080115
  Serious: Yes (Hospitalization)
  Sender: FDA-Public Use
  Company Number: HQWYE207218SEP07

PATIENT
  Sex: Male
  Weight: 67.19 kg

DRUGS (4)
  1. TEMSIROLIMUS [Suspect]
     Indication: CHEMOTHERAPY
     Route: 042
     Dates: start: 20070223
  2. PHOSPHORUS [Concomitant]
  3. PROTONIX [Concomitant]
  4. TYLENOL W/ CODEINE NO. 3 [Concomitant]

REACTIONS (3)
  - DEHYDRATION [None]
  - DIARRHOEA [None]
  - LEUKOCYTOSIS [None]
